FAERS Safety Report 10226418 (Version 1)
Quarter: 2014Q2

REPORT INFORMATION
  Report Type: Spontaneous
  Country: US (occurrence: US)
  Receive Date: 20140609
  Receipt Date: 20140609
  Transmission Date: 20141212
  Serious: No
  Sender: FDA-Public Use
  Company Number: US-AMGEN INC.-USASP2013053895

PATIENT
  Age: 70 Year
  Sex: Male

DRUGS (2)
  1. EPOGEN [Suspect]
     Indication: NEPHROGENIC ANAEMIA
     Dosage: UNK
     Route: 065
  2. EPOGEN [Suspect]

REACTIONS (1)
  - Haemoglobin abnormal [Unknown]
